FAERS Safety Report 21208281 (Version 2)
Quarter: 2022Q3

REPORT INFORMATION
  Report Type: Report from Study
  Country: PL (occurrence: PL)
  Receive Date: 20220812
  Receipt Date: 20220902
  Transmission Date: 20221027
  Serious: Yes (Hospitalization)
  Sender: FDA-Public Use
  Company Number: PL-JNJFOC-20220810913

PATIENT
  Age: 83 Year
  Sex: Female
  Weight: 80 kg

DRUGS (41)
  1. ESKETAMINE [Suspect]
     Active Substance: ESKETAMINE
     Indication: Depression
     Dates: start: 20170829
  2. ESKETAMINE [Suspect]
     Active Substance: ESKETAMINE
     Dosage: WEEK 257 VISIT
     Dates: start: 20220726
  3. ESKETAMINE [Suspect]
     Active Substance: ESKETAMINE
     Dosage: WEEK 259 VISIT
     Dates: start: 20220809
  4. LEVOTHYROXINUM NATRICUM [Concomitant]
     Indication: Goitre
     Route: 048
     Dates: start: 2015
  5. ASPIRIN [Concomitant]
     Active Substance: ASPIRIN
     Indication: Thrombosis prophylaxis
     Route: 048
     Dates: start: 2015
  6. DICLOFENACUM NATRICUM [Concomitant]
     Indication: Osteoarthritis
     Route: 048
     Dates: start: 2014
  7. CLONAZEPAM [Concomitant]
     Active Substance: CLONAZEPAM
     Indication: Depression
     Route: 048
     Dates: start: 20160505
  8. DULOXETINE [Concomitant]
     Active Substance: DULOXETINE
     Indication: Depression
     Route: 048
     Dates: start: 20170516, end: 20181030
  9. NORFLOXACINUM [Concomitant]
     Indication: Urinary tract infection
     Route: 048
     Dates: start: 20180117, end: 20180126
  10. NORFLOXACINUM [Concomitant]
     Route: 048
     Dates: start: 20180906, end: 20180914
  11. SACCHAROMYCES CEREVISIAE [Concomitant]
     Active Substance: SACCHAROMYCES CEREVISIAE
     Indication: Prophylaxis
     Route: 048
     Dates: start: 20180117, end: 20180126
  12. ENOXAPARINUM NATRICUM [Concomitant]
     Indication: Hip arthroplasty
     Route: 058
     Dates: start: 20180216, end: 20180313
  13. CIPROFLOXACINUM [CIPROFLOXACIN] [Concomitant]
     Indication: Hip arthroplasty
     Route: 048
     Dates: start: 20180216, end: 20180225
  14. CIPROFLOXACINUM [CIPROFLOXACIN] [Concomitant]
     Indication: Urinary tract infection
     Route: 048
     Dates: start: 20190730, end: 20190803
  15. CIPROFLOXACINUM [CIPROFLOXACIN] [Concomitant]
     Route: 048
     Dates: start: 20210203, end: 20210207
  16. CIPROFLOXACINUM [CIPROFLOXACIN] [Concomitant]
     Route: 048
     Dates: start: 20210323, end: 20210327
  17. CIPROFLOXACINUM [CIPROFLOXACIN] [Concomitant]
     Route: 048
     Dates: start: 20220518, end: 20220522
  18. ACTIVATED CHARCOAL [Concomitant]
     Active Substance: ACTIVATED CHARCOAL
     Indication: Diarrhoea
     Route: 048
     Dates: start: 20180319, end: 20180321
  19. METOCLOPRAMIDE [Concomitant]
     Active Substance: METOCLOPRAMIDE
     Indication: Nausea
     Route: 048
     Dates: start: 20180829, end: 20181006
  20. BETAHISTINE [Concomitant]
     Active Substance: BETAHISTINE
     Indication: Vertigo
     Route: 048
     Dates: start: 20180822, end: 20181028
  21. MAPROTILINI HYDROCHLORIDUM [Concomitant]
     Indication: Depression
     Route: 048
     Dates: start: 20181031, end: 20181104
  22. MAPROTILINI HYDROCHLORIDUM [Concomitant]
     Route: 048
     Dates: start: 20181105, end: 20200616
  23. MAPROTILINI HYDROCHLORIDUM [Concomitant]
     Route: 048
     Dates: start: 20200617, end: 20200622
  24. FURAZIDINE [Concomitant]
     Active Substance: FURAZIDINE
     Indication: Urinary tract infection
     Route: 048
     Dates: start: 20190207, end: 20190210
  25. FURAZIDINE [Concomitant]
     Active Substance: FURAZIDINE
     Indication: Cystitis
     Route: 048
     Dates: start: 20200919, end: 20200929
  26. FURAZIDINE [Concomitant]
     Active Substance: FURAZIDINE
     Route: 048
     Dates: start: 20201007, end: 20201012
  27. FURAZIDINE [Concomitant]
     Active Substance: FURAZIDINE
     Route: 048
     Dates: start: 20201216, end: 20201222
  28. FURAZIDINE [Concomitant]
     Active Substance: FURAZIDINE
     Route: 048
     Dates: start: 20210602, end: 20210602
  29. FURAZIDINE [Concomitant]
     Active Substance: FURAZIDINE
     Route: 048
     Dates: start: 20210603, end: 20210622
  30. FURAZIDINE [Concomitant]
     Active Substance: FURAZIDINE
     Route: 048
     Dates: start: 20211029, end: 20211103
  31. SERTRALINE HYDROCHLORIDE [Concomitant]
     Active Substance: SERTRALINE HYDROCHLORIDE
     Indication: Depression
     Route: 048
     Dates: start: 20200617, end: 20200622
  32. SERTRALINE HYDROCHLORIDE [Concomitant]
     Active Substance: SERTRALINE HYDROCHLORIDE
     Route: 048
     Dates: start: 20200623
  33. CEFUROXIME [Concomitant]
     Active Substance: CEFUROXIME
     Indication: Cystitis
     Route: 048
     Dates: start: 20210702, end: 20210708
  34. CEFUROXIME [Concomitant]
     Active Substance: CEFUROXIME
     Indication: Urinary tract infection
     Route: 048
     Dates: start: 20180915, end: 20180921
  35. SANPROBI [Concomitant]
     Indication: Cystitis
     Dosage: 2 CAPSULES
     Route: 048
     Dates: start: 20210702, end: 20210711
  36. CANEPHRON [CENTAURIUM ERYTHRAEA;LEVISTICUM OFFICINALE;ROSA CANINA;ROSM [Concomitant]
     Indication: Prophylaxis urinary tract infection
     Dosage: 2 TABLETS
     Route: 048
     Dates: start: 20210716, end: 20210725
  37. ACETAMINOPHEN [Concomitant]
     Active Substance: ACETAMINOPHEN
     Indication: COVID-19
     Route: 048
     Dates: start: 20211217, end: 20211223
  38. ACETAMINOPHEN [Concomitant]
     Active Substance: ACETAMINOPHEN
     Route: 048
     Dates: start: 20211224, end: 20211226
  39. AMOXICILLIN [Concomitant]
     Active Substance: AMOXICILLIN
     Indication: Urinary tract infection
     Route: 048
     Dates: start: 20220216, end: 20220222
  40. CLAVULANIC ACID [Concomitant]
     Active Substance: CLAVULANIC ACID
     Indication: Urinary tract infection
     Route: 048
     Dates: start: 20220216, end: 20220222
  41. OMEPRAZOLE [Concomitant]
     Active Substance: OMEPRAZOLE
     Indication: Abdominal pain
     Route: 048
     Dates: start: 20220726, end: 20220726

REACTIONS (1)
  - Duodenal perforation [Recovered/Resolved]

NARRATIVE: CASE EVENT DATE: 20220729
